FAERS Safety Report 7384166-X (Version None)
Quarter: 2011Q1

REPORT INFORMATION
  Report Type: 
  Country: None (occurrence: None)
  Receive Date: 20110330
  Receipt Date: 20110324
  Transmission Date: 20110831
  Serious: Yes (Hospitalization)
  Sender: FDA-Public Use
  Company Number: B0708170A

PATIENT
  Sex: Male

DRUGS (9)
  1. AUGMENTIN [Suspect]
     Indication: INFLAMMATION
     Dosage: 1G THREE TIMES PER DAY
     Route: 048
     Dates: start: 20110303, end: 20110307
  2. NEXIUM [Concomitant]
  3. CRESTOR [Concomitant]
  4. LOSARTAN POTASSIUM [Concomitant]
  5. KARDEGIC [Concomitant]
  6. SERESTA [Concomitant]
  7. GLUCOPHAGE [Concomitant]
  8. PREVISCAN [Concomitant]
     Dates: start: 20110201
  9. CORDARONE [Concomitant]

REACTIONS (2)
  - PRURITUS [None]
  - ERYTHEMA [None]
